FAERS Safety Report 9148446 (Version 1)
Quarter: 2013Q1

REPORT INFORMATION
  Report Type: Spontaneous
  Country: ES (occurrence: ES)
  Receive Date: 20130308
  Receipt Date: 20130308
  Transmission Date: 20140127
  Serious: Yes (Life-Threatening, Hospitalization)
  Sender: FDA-Public Use
  Company Number: PHHY2013ES022022

PATIENT
  Age: 57 Year
  Sex: Female

DRUGS (6)
  1. MYFORTIC [Suspect]
     Indication: RHEUMATOID ARTHRITIS
     Dosage: 1.44 G, UNK
     Route: 048
     Dates: start: 201207, end: 20120917
  2. COLECALCIFEROL [Suspect]
     Dosage: 2.5 G, UNK
     Route: 048
     Dates: start: 201207, end: 20120917
  3. ARTILOG [Suspect]
     Indication: RHEUMATOID ARTHRITIS
     Dosage: 400 MG, UNK
     Route: 048
     Dates: start: 201207, end: 20120917
  4. PANTOPRAZOLE [Concomitant]
     Indication: PROPHYLAXIS
     Dosage: 40 MG, UNK
     Route: 048
  5. RITUXIMAB [Concomitant]
     Indication: RHEUMATOID ARTHRITIS
     Dosage: 2 G, UNK
     Route: 048
     Dates: start: 20120719, end: 20120802
  6. PREDNISONE [Concomitant]
     Indication: RHEUMATOID ARTHRITIS
     Dosage: 10 MG, UNK
     Route: 048
     Dates: start: 201201

REACTIONS (7)
  - Scleroderma [Unknown]
  - Asthenia [Unknown]
  - Arthralgia [Unknown]
  - Infection [Unknown]
  - Pyrexia [Unknown]
  - Headache [Unknown]
  - Neutropenia [Recovered/Resolved]
